FAERS Safety Report 18179740 (Version 1)
Quarter: 2020Q3

REPORT INFORMATION
  Report Type: Spontaneous
  Country: US (occurrence: US)
  Receive Date: 20200820
  Receipt Date: 20200820
  Transmission Date: 20201103
  Serious: Yes (Disabling)
  Sender: FDA-Public Use
  Company Number: None

PATIENT
  Age: 32 Year
  Sex: Male
  Weight: 67.5 kg

DRUGS (4)
  1. MULTIVITAMIN [Concomitant]
     Active Substance: VITAMINS
  2. VYVANSE [Concomitant]
     Active Substance: LISDEXAMFETAMINE DIMESYLATE
  3. FINASTERIDE 1 MG TAB MERC [Suspect]
     Active Substance: FINASTERIDE
     Indication: ANDROGENETIC ALOPECIA
     Dosage: ?          QUANTITY:1 TABLET(S);?
     Route: 048
  4. LUNESTA [Concomitant]
     Active Substance: ESZOPICLONE

REACTIONS (7)
  - Feeling abnormal [None]
  - Erectile dysfunction [None]
  - Muscle twitching [None]
  - Insomnia [None]
  - Anxiety [None]
  - Drug withdrawal syndrome [None]
  - Disturbance in attention [None]

NARRATIVE: CASE EVENT DATE: 20190401
